FAERS Safety Report 9660226 (Version 2)
Quarter: 2013Q4

REPORT INFORMATION
  Report Type: Spontaneous
  Country: US (occurrence: US)
  Receive Date: 20131031
  Receipt Date: 20131031
  Transmission Date: 20140711
  Serious: No
  Sender: FDA-Public Use
  Company Number: US-PURDUE-USA-2011-0066455

PATIENT
  Age: 15 Year
  Sex: Female

DRUGS (9)
  1. OXYCONTIN TABLETS [Suspect]
     Indication: PRODUCT USED FOR UNKNOWN INDICATION
     Dosage: 160 MG, BID
  2. MORPHINE SULFATE (SIMILAR TO NDA 19-516) [Suspect]
     Indication: PAIN
  3. OXYCODONE HYDROCHLORIDE (SIMILAR TO NDA 20-553) [Suspect]
  4. HYDROCODONE [Suspect]
     Indication: PAIN
  5. METHADONE [Suspect]
     Indication: PAIN
  6. LEVORPHANOL [Suspect]
     Indication: PAIN
  7. FENTANYL [Suspect]
     Indication: PAIN
  8. ANTICONVULSANT [Concomitant]
     Indication: PRODUCT USED FOR UNKNOWN INDICATION
  9. ANTIDEPRESSANTS [Concomitant]
     Indication: PRODUCT USED FOR UNKNOWN INDICATION

REACTIONS (2)
  - Pain [Unknown]
  - Unevaluable event [Unknown]
